FAERS Safety Report 5267774-1 (Version None)
Quarter: 2007Q1

REPORT INFORMATION
  Report Type: 
  Country: None (occurrence: None)
  Receive Date: 20070316
  Receipt Date: 20070305
  Transmission Date: 20070707
  Serious: Yes (Other)
  Sender: FDA-Public Use
  Company Number: KR-PFIZER INC-2007017695

PATIENT
  Sex: Male
  Weight: 69 kg

DRUGS (6)
  1. SU-011,248 [Suspect]
     Indication: METASTATIC RENAL CELL CARCINOMA
     Route: 048
  2. ACECLOFENAC [Concomitant]
     Route: 048
  3. MAGNESIUM OXIDE [Concomitant]
     Route: 048
  4. TRAMADOL HCL [Concomitant]
     Route: 048
  5. TEPRENONE [Concomitant]
     Route: 048
  6. OXYCODONE HCL [Concomitant]
     Route: 048

REACTIONS (2)
  - CARDIOMEGALY [None]
  - DYSPNOEA [None]
